FAERS Safety Report 5318259-5 (Version None)
Quarter: 2007Q2

REPORT INFORMATION
  Report Type: 
  Country: None (occurrence: None)
  Receive Date: 20070507
  Receipt Date: 20070426
  Transmission Date: 20071010
  Serious: Yes (Other)
  Sender: FDA-Public Use
  Company Number: PHBS2007CO07409

PATIENT
  Age: 77 Year
  Sex: Female

DRUGS (2)
  1. PERSANTIN [Concomitant]
  2. ZELMAC [Suspect]
     Dosage: 6 MG, UNK
     Route: 048

REACTIONS (2)
  - ARRHYTHMIA [None]
  - CHEST PAIN [None]
